FAERS Safety Report 9537303 (Version 1)
Quarter: 2013Q3

REPORT INFORMATION
  Report Type: Spontaneous
  Country: US (occurrence: US)
  Receive Date: 20130919
  Receipt Date: 20130919
  Transmission Date: 20140515
  Serious: No
  Sender: FDA-Public Use
  Company Number: US-009507513-1309USA005591

PATIENT
  Age: 49 Year
  Sex: Male

DRUGS (1)
  1. PROPECIA [Suspect]
     Indication: ANDROGENETIC ALOPECIA
     Dosage: UNK, QD
     Route: 048
     Dates: start: 2003

REACTIONS (4)
  - Drug ineffective [Unknown]
  - Erythema [Unknown]
  - Skin disorder [Unknown]
  - Pruritus [Unknown]
